FAERS Safety Report 8605523-7 (Version None)
Quarter: 2012Q3

REPORT INFORMATION
  Report Type: 
  Country: None (occurrence: None)
  Receive Date: 20120820
  Receipt Date: 20120809
  Transmission Date: 20120928
  Serious: Yes (Other)
  Sender: FDA-Public Use
  Company Number: US-ASTRAZENECA-2012SE53778

PATIENT
  Age: 76 Year
  Sex: Female

DRUGS (1)
  1. CRESTOR [Suspect]
     Route: 048

REACTIONS (1)
  - BREAST CANCER RECURRENT [None]
